FAERS Safety Report 14321495 (Version 1)
Quarter: 2017Q4

REPORT INFORMATION
  Report Type: Report from Study
  Country: US (occurrence: US)
  Receive Date: 20171223
  Receipt Date: 20171223
  Transmission Date: 20180321
  Serious: No
  Sender: FDA-Public Use
  Company Number: PHEH2017US041361

PATIENT
  Sex: Female
  Weight: 98.8 kg

DRUGS (1)
  1. COSENTYX [Suspect]
     Active Substance: SECUKINUMAB
     Indication: PSORIATIC ARTHROPATHY
     Dosage: 399 MG, QMO
     Route: 058

REACTIONS (5)
  - Skin lesion [Unknown]
  - Arthritis [Unknown]
  - Pain in extremity [Unknown]
  - Alopecia [Unknown]
  - Oral herpes [Unknown]
